FAERS Safety Report 8223572-8 (Version None)
Quarter: 2012Q1

REPORT INFORMATION
  Report Type: 
  Country: None (occurrence: None)
  Receive Date: 20120321
  Receipt Date: 20120319
  Transmission Date: 20120608
  Serious: No
  Sender: FDA-Public Use
  Company Number: US-PFIZER INC-2012071542

PATIENT
  Sex: Female
  Weight: 63.492 kg

DRUGS (3)
  1. TEMAZEPAM [Concomitant]
     Indication: SLEEP DISORDER
     Dosage: 15 MG, DAILY
  2. DIAZEPAM [Concomitant]
     Dosage: 10 MG, 3X/DAY
  3. CHANTIX [Suspect]
     Indication: SMOKING CESSATION THERAPY
     Dosage: 0.5 MG, DAILY
     Route: 048
     Dates: start: 20110101, end: 20110101

REACTIONS (1)
  - ABNORMAL DREAMS [None]
